FAERS Safety Report 7169787-1 (Version None)
Quarter: 2010Q4

REPORT INFORMATION
  Report Type: 
  Country: None (occurrence: None)
  Receive Date: 20101217
  Receipt Date: 20100810
  Transmission Date: 20110411
  Serious: No
  Sender: FDA-Public Use
  Company Number: A0874888A

PATIENT
  Age: 68 Year
  Sex: Female

DRUGS (5)
  1. SORIATANE [Suspect]
     Indication: PSORIASIS
     Dosage: 25MG ALTERNATE DAYS
     Route: 048
     Dates: start: 20090901, end: 20091001
  2. PLAVIX [Concomitant]
  3. NISOLDIPINE [Concomitant]
  4. BISOPROLOL FUMARATE AND HYDROCHLOROTHIAZIDE [Concomitant]
  5. WELCHOL [Concomitant]

REACTIONS (1)
  - ALOPECIA [None]
